FAERS Safety Report 5761000-2 (Version None)
Quarter: 2008Q2

REPORT INFORMATION
  Report Type: 
  Country: None (occurrence: None)
  Receive Date: 20080606
  Receipt Date: 20071017
  Transmission Date: 20081010
  Serious: No
  Sender: FDA-Public Use
  Company Number: US-ASTRAZENECA-2007UW24351

PATIENT
  Sex: Female
  Weight: 63.6 kg

DRUGS (8)
  1. PRILOSEC [Suspect]
     Indication: GASTROOESOPHAGEAL REFLUX DISEASE
     Dosage: BOTH 20 MG AND 40 MG
     Route: 048
  2. PRILOSEC [Suspect]
     Dosage: BOTH 20 MG AND 40 MG
     Route: 048
  3. PRILOSEC OTC [Suspect]
     Indication: GASTROOESOPHAGEAL REFLUX DISEASE
     Dosage: BOTH 20 MG AND 40 MG
     Route: 048
     Dates: start: 20070417, end: 20070717
  4. PRILOSEC OTC [Suspect]
     Dosage: BOTH 20 MG AND 40 MG
     Route: 048
     Dates: start: 20070417, end: 20070717
  5. WELLBUTRIN [Concomitant]
     Indication: GASTROOESOPHAGEAL REFLUX DISEASE
  6. WELLBUTRIN [Concomitant]
  7. LOPRESSOR [Concomitant]
  8. LISINOPRIL [Concomitant]

REACTIONS (10)
  - APTYALISM [None]
  - BACK PAIN [None]
  - DRY MOUTH [None]
  - DRY SKIN [None]
  - GINGIVAL DISORDER [None]
  - GLOSSODYNIA [None]
  - HEADACHE [None]
  - NECK PAIN [None]
  - TOOTH DISORDER [None]
  - VISION BLURRED [None]
